FAERS Safety Report 8231323-6 (Version None)
Quarter: 2012Q1

REPORT INFORMATION
  Report Type: 
  Country: None (occurrence: None)
  Receive Date: 20120323
  Receipt Date: 20120313
  Transmission Date: 20120608
  Serious: Yes (Other)
  Sender: FDA-Public Use
  Company Number: DE-VERTEX PHARMACEUTICALS INC.-000000000000000372

PATIENT
  Age: 53 Year
  Sex: Male

DRUGS (3)
  1. RIBAVIRIN [Concomitant]
     Indication: PRODUCT USED FOR UNKNOWN INDICATION
     Dosage: DOSAGE FORM: UNKNOWN
     Route: 065
     Dates: start: 20111028
  2. PEGINTERFERON ALFA-2A [Concomitant]
     Indication: PRODUCT USED FOR UNKNOWN INDICATION
     Dosage: DOSAGE FORM: UNKNOWN
     Route: 065
     Dates: start: 20110928
  3. INCIVO [Suspect]
     Indication: HEPATITIS C
     Dosage: DOSAGE FORM: TABLET
     Route: 048
     Dates: start: 20111028, end: 20120120

REACTIONS (3)
  - HYPERTENSION [None]
  - DYSPNOEA EXERTIONAL [None]
  - OEDEMA PERIPHERAL [None]
